FAERS Safety Report 13934468 (Version 1)
Quarter: 2017Q3

REPORT INFORMATION
  Report Type: Report from Study
  Country: US (occurrence: US)
  Receive Date: 20170905
  Receipt Date: 20170905
  Transmission Date: 20171127
  Serious: No
  Sender: FDA-Public Use
  Company Number: US-ROCHE-1956283

PATIENT
  Age: 53 Year
  Sex: Female
  Weight: 96.7 kg

DRUGS (2)
  1. RITUXAN [Suspect]
     Active Substance: RITUXIMAB
     Indication: MULTIPLE SCLEROSIS
     Route: 065
  2. OCREVUS [Suspect]
     Active Substance: OCRELIZUMAB
     Indication: MULTIPLE SCLEROSIS
     Route: 042
     Dates: start: 20170804

REACTIONS (10)
  - Pruritus [Recovered/Resolved]
  - Fungal infection [Unknown]
  - Skin ulcer [Unknown]
  - Herpes virus infection [Unknown]
  - Intentional product use issue [Unknown]
  - Off label use [Unknown]
  - Vulvovaginal swelling [Unknown]
  - Urinary tract infection [Unknown]
  - Urinary retention [Unknown]
  - Herpes virus infection [Unknown]

NARRATIVE: CASE EVENT DATE: 20170804
